FAERS Safety Report 5252828-6 (Version None)
Quarter: 2007Q1

REPORT INFORMATION
  Report Type: 
  Country: None (occurrence: None)
  Receive Date: 20070227
  Receipt Date: 20070216
  Transmission Date: 20070707
  Serious: Yes (Other)
  Sender: FDA-Public Use
  Company Number: GXKR2007DE01753

PATIENT
  Sex: Female

DRUGS (2)
  1. FURORESE (NGX) (FUROSEMIDE) SOLUTION FOR INJECTION, 40MG [Suspect]
     Dosage: INTRAVENOUS
     Route: 042
  2. CANDESARTAN (CANDESARTAN) [Concomitant]

REACTIONS (1)
  - ANGIOEDEMA [None]
